FAERS Safety Report 8470279-8 (Version None)
Quarter: 2012Q2

REPORT INFORMATION
  Report Type: 
  Country: None (occurrence: None)
  Receive Date: 20120621
  Receipt Date: 20120621
  Transmission Date: 20120825
  Serious: Yes (Hospitalization)
  Sender: FDA-Public Use
  Company Number: None

PATIENT
  Sex: Female
  Weight: 65 kg

DRUGS (3)
  1. ALIMTA [Suspect]
     Dosage: 615 MG IV
     Route: 042
  2. CARBOPLATIN [Suspect]
     Dosage: 150 MG IV
     Route: 042
     Dates: start: 20120529
  3. AVASTIN [Suspect]
     Dosage: 975 MG IV
     Route: 042

REACTIONS (1)
  - CARDIAC FAILURE CONGESTIVE [None]
